FAERS Safety Report 17483697 (Version 1)
Quarter: 2020Q1

REPORT INFORMATION
  Report Type: Spontaneous
  Country: SE (occurrence: SE)
  Receive Date: 20200302
  Receipt Date: 20200302
  Transmission Date: 20200409
  Serious: Yes (Hospitalization)
  Sender: FDA-Public Use
  Company Number: NVSC2020SE053111

PATIENT
  Age: 16 Year
  Sex: Female

DRUGS (6)
  1. FLUOXETINE [Suspect]
     Active Substance: FLUOXETINE HYDROCHLORIDE
     Indication: PRODUCT USED FOR UNKNOWN INDICATION
     Dosage: UNK (5-6 ST)
     Route: 065
     Dates: start: 20180116, end: 20180116
  2. SERTRALINE [Suspect]
     Active Substance: SERTRALINE HYDROCHLORIDE
     Indication: PRODUCT USED FOR UNKNOWN INDICATION
     Dosage: 1000 MG (10 ST ? 100 MG)
     Route: 065
     Dates: start: 20180116, end: 20180116
  3. IBUMETIN [Suspect]
     Active Substance: IBUPROFEN
     Indication: PRODUCT USED FOR UNKNOWN INDICATION
     Dosage: 17600 MG (44 ST ? 400 MG)
     Route: 065
     Dates: start: 20180116, end: 20180116
  4. QUETIAPINE. [Suspect]
     Active Substance: QUETIAPINE
     Indication: PRODUCT USED FOR UNKNOWN INDICATION
     Dosage: 250 MG (10 ST ? 25 MG)
     Route: 065
     Dates: start: 20180116, end: 20180116
  5. PROPAVAN [Suspect]
     Active Substance: PROPIOMAZINE
     Indication: PRODUCT USED FOR UNKNOWN INDICATION
     Dosage: 500 MG (20 ST ? 25 MG)
     Route: 048
     Dates: start: 20180116, end: 20180116
  6. PARACETAMOL [Suspect]
     Active Substance: ACETAMINOPHEN
     Indication: PRODUCT USED FOR UNKNOWN INDICATION
     Dosage: 5000 MG (10 ST ? 500 MG)
     Route: 065
     Dates: start: 20180116, end: 20180116

REACTIONS (4)
  - Vomiting [Unknown]
  - Intentional self-injury [Unknown]
  - Depressed level of consciousness [Unknown]
  - Intentional overdose [Unknown]

NARRATIVE: CASE EVENT DATE: 20180116
